FAERS Safety Report 4699664-7 (Version None)
Quarter: 2005Q2

REPORT INFORMATION
  Report Type: 
  Country: None (occurrence: None)
  Receive Date: 20050623
  Receipt Date: 20050610
  Transmission Date: 20051028
  Serious: Yes (Other)
  Sender: FDA-Public Use
  Company Number: 2005072556

PATIENT
  Age: 35 Year
  Sex: Female
  Weight: 61 kg

DRUGS (7)
  1. DEPO-PROVERA [Suspect]
     Indication: CONTRACEPTION
     Dosage: (1ST INJECTION), INTRAMUSCULAR
     Route: 030
     Dates: start: 20050427, end: 20050427
  2. DEPO-PROVERA [Suspect]
     Indication: CONVULSION
     Dosage: (1ST INJECTION), INTRAMUSCULAR
     Route: 030
     Dates: start: 20050427, end: 20050427
  3. VITAMINS (VITAMINS) [Concomitant]
  4. TEGRETOL [Concomitant]
  5. CLOBAZAM (CLOBAZAM) [Concomitant]
  6. THYROXINE (LEVOTHYROXINE) [Concomitant]
  7. FERROUS SULFATE TAB [Concomitant]

REACTIONS (5)
  - ALOPECIA [None]
  - HAEMORRHAGE [None]
  - PANIC REACTION [None]
  - PARTIAL SEIZURES [None]
  - SERUM FERRITIN DECREASED [None]
